FAERS Safety Report 18829167 (Version 1)
Quarter: 2021Q1

REPORT INFORMATION
  Report Type: Spontaneous
  Country: US (occurrence: US)
  Receive Date: 20210201
  Receipt Date: 20210201
  Transmission Date: 20210419
  Serious: No
  Sender: FDA-Public Use
  Company Number: US-ABBVIE-20K-163-3549622-00

PATIENT
  Sex: Female

DRUGS (1)
  1. HUMIRA [Suspect]
     Active Substance: ADALIMUMAB
     Indication: PRODUCT USED FOR UNKNOWN INDICATION
     Route: 058
     Dates: start: 2006, end: 200607

REACTIONS (16)
  - Drug ineffective [Unknown]
  - Joint space narrowing [Unknown]
  - Rheumatoid arthritis [Unknown]
  - Palindromic rheumatism [Unknown]
  - Scoliosis [Unknown]
  - Arthritis [Unknown]
  - Liver function test increased [Unknown]
  - Rotator cuff syndrome [Unknown]
  - Bursitis [Unknown]
  - Anaemia [Unknown]
  - Arthralgia [Unknown]
  - Blood creatine phosphokinase increased [Unknown]
  - Back pain [Unknown]
  - Muscle spasms [Unknown]
  - Peripheral swelling [Unknown]
  - Musculoskeletal disorder [Unknown]

NARRATIVE: CASE EVENT DATE: 2006
